FAERS Safety Report 10209411 (Version 1)
Quarter: 2014Q2

REPORT INFORMATION
  Report Type: Spontaneous
  Country: NL (occurrence: NL)
  Receive Date: 20140601
  Receipt Date: 20140601
  Transmission Date: 20141212
  Serious: Yes (Other)
  Sender: FDA-Public Use
  Company Number: NL-009507513-1405NLD012209

PATIENT
  Age: 38 Year
  Sex: Female
  Weight: 94 kg

DRUGS (4)
  1. MIRTAZAPINE [Suspect]
     Indication: DEPRESSION
     Dosage: ONCE DAILY 0.5 PIECE, EXTRA INFORMATION: 6.5 MG
     Route: 048
     Dates: start: 20140502
  2. VENLAFAXINE HYDROCHLORIDE [Interacting]
     Indication: DEPRESSION
     Dosage: ONCE DAILY 1 PIECE , EXTRA INFORMATION: 150 MG, PROLONGED-RELEASE CAPSULE
     Route: 048
     Dates: start: 201205
  3. CERAZETTE [Concomitant]
     Dosage: ONCE DAILY 1 PIECE
     Route: 048
     Dates: start: 2009
  4. METOPROLOL [Concomitant]
     Dosage: EXTRA INFO: 50  MG
     Route: 048
     Dates: start: 2013

REACTIONS (7)
  - Drug interaction [Recovering/Resolving]
  - Psychotic disorder [Recovering/Resolving]
  - Hypertension [Recovering/Resolving]
  - Serotonin syndrome [Recovering/Resolving]
  - Agitation [Recovering/Resolving]
  - Aggression [Recovering/Resolving]
  - Anxiety [Recovering/Resolving]
